FAERS Safety Report 12237293 (Version 1)
Quarter: 2016Q2

REPORT INFORMATION
  Report Type: Spontaneous
  Country: US (occurrence: None)
  Receive Date: 20160404
  Receipt Date: 20160404
  Transmission Date: 20160815
  Serious: Yes (Other)
  Sender: FDA-Public Use
  Company Number: None

PATIENT
  Age: 61 Year
  Sex: Male
  Weight: 86.18 kg

DRUGS (8)
  1. MULTI VITAMIN [Concomitant]
     Active Substance: VITAMINS
  2. PREVIDENT 5000 PLUS SPEARMINT [Suspect]
     Active Substance: SODIUM FLUORIDE
     Indication: DENTAL CARIES
     Dosage: 1.8 OUNCE (S) ONCE A DAY TAKEN BY MOUTH
     Route: 048
     Dates: start: 20150903, end: 20160101
  3. RABEPRAZOLE [Concomitant]
     Active Substance: RABEPRAZOLE
  4. LISINOPRIL. [Concomitant]
     Active Substance: LISINOPRIL
  5. COLESTIPOL [Concomitant]
     Active Substance: COLESTIPOL
  6. KRILL OIL [Concomitant]
     Active Substance: DIETARY SUPPLEMENT
  7. VITAMIN D3 [Concomitant]
     Active Substance: CHOLECALCIFEROL
  8. PREVIDENT 5000 PLUS SPEARMINT [Suspect]
     Active Substance: SODIUM FLUORIDE
     Indication: PROPHYLAXIS
     Dosage: 1.8 OUNCE (S) ONCE A DAY TAKEN BY MOUTH
     Route: 048
     Dates: start: 20150903, end: 20160101

REACTIONS (2)
  - Dental caries [None]
  - Nausea [None]

NARRATIVE: CASE EVENT DATE: 20160330
